FAERS Safety Report 15243384 (Version 1)
Quarter: 2018Q3

REPORT INFORMATION
  Report Type: Spontaneous
  Country: US (occurrence: US)
  Receive Date: 20180712
  Receipt Date: 20180712
  Transmission Date: 20181010
  Serious: No
  Sender: FDA-Public Use
  Company Number: None

PATIENT
  Age: 44 Year
  Sex: Female

DRUGS (1)
  1. CAPECITABINE TAB 500MG [Suspect]
     Active Substance: CAPECITABINE
     Dates: start: 20180709, end: 20180712

REACTIONS (5)
  - Headache [None]
  - Lung infection [None]
  - Sinus congestion [None]
  - Ear congestion [None]
  - Arthralgia [None]

NARRATIVE: CASE EVENT DATE: 20180709
